FAERS Safety Report 15672404 (Version 3)
Quarter: 2019Q2

REPORT INFORMATION
  Report Type: Report from Study
  Country: CA (occurrence: CA)
  Receive Date: 20181129
  Receipt Date: 20190514
  Transmission Date: 20190711
  Serious: Yes (Other)
  Sender: FDA-Public Use
  Company Number: CA-JNJFOC-20181102952

PATIENT
  Age: 47 Year
  Sex: Male
  Weight: 59 kg

DRUGS (1)
  1. STELARA [Suspect]
     Active Substance: USTEKINUMAB
     Indication: CROHN^S DISEASE
     Dosage: STRENGTH = 90 MG
     Route: 058
     Dates: start: 20170927

REACTIONS (5)
  - Abdominal pain [Unknown]
  - Wound infection [Unknown]
  - Sports injury [Unknown]
  - Inappropriate schedule of product administration [Unknown]
  - Jaw fracture [Recovering/Resolving]

NARRATIVE: CASE EVENT DATE: 2018
